FAERS Safety Report 11024001 (Version 2)
Quarter: 2015Q2

REPORT INFORMATION
  Report Type: Spontaneous
  Country: US (occurrence: US)
  Receive Date: 20150413
  Receipt Date: 20150525
  Transmission Date: 20150821
  Serious: Yes (Other)
  Sender: FDA-Public Use
  Company Number: US-JNJFOC-20090900004

PATIENT
  Age: 53 Year
  Sex: Male
  Weight: 117.94 kg

DRUGS (3)
  1. AVELOX [Suspect]
     Active Substance: MOXIFLOXACIN HYDROCHLORIDE
     Indication: SINUSITIS
     Route: 065
  2. PREDNISONE. [Suspect]
     Active Substance: PREDNISONE
     Indication: PRODUCT USED FOR UNKNOWN INDICATION
     Route: 065
  3. LEVAQUIN [Suspect]
     Active Substance: LEVOFLOXACIN
     Indication: SINUSITIS
     Route: 048
     Dates: start: 20080118, end: 20080123

REACTIONS (5)
  - Tendonitis [Unknown]
  - Hypoaesthesia [Unknown]
  - Tendonitis [Unknown]
  - Tendon rupture [Unknown]
  - Tendon rupture [Unknown]

NARRATIVE: CASE EVENT DATE: 2008
